FAERS Safety Report 9499130 (Version 1)
Quarter: 2013Q3

REPORT INFORMATION
  Report Type: Other
  Country: ZA (occurrence: ZA)
  Receive Date: 20130904
  Receipt Date: 20130904
  Transmission Date: 20140515
  Serious: Yes (Death)
  Sender: FDA-Public Use
  Company Number: ZA-BRISTOL-MYERS SQUIBB COMPANY-19340504

PATIENT
  Sex: 0

DRUGS (3)
  1. EFAVIRENZ [Suspect]
     Route: 064
  2. LAMIVUDINE [Suspect]
     Route: 064
  3. TENOFOVIR [Suspect]
     Route: 064

REACTIONS (1)
  - Death neonatal [Fatal]
